FAERS Safety Report 25937588 (Version 2)
Quarter: 2025Q4

REPORT INFORMATION
  Report Type: Spontaneous
  Country: US (occurrence: US)
  Receive Date: 20251018
  Receipt Date: 20251027
  Transmission Date: 20260118
  Serious: Yes (Hospitalization, Disabling, Other)
  Sender: AUROBINDO
  Company Number: US-AUROBINDO-AUR-APL-2025-052392

PATIENT
  Age: 75 Year
  Sex: Male

DRUGS (6)
  1. LIDOCAINE [Suspect]
     Active Substance: LIDOCAINE
     Indication: Age-related macular degeneration
     Dosage: 0.07 MILLILITER
  2. LIDOCAINE [Suspect]
     Active Substance: LIDOCAINE
     Indication: Neovascular age-related macular degeneration
  3. AFLIBERCEPT [Concomitant]
     Active Substance: AFLIBERCEPT
     Indication: Neovascular age-related macular degeneration
     Dosage: UNK
  4. BIMATOPROST [Concomitant]
     Active Substance: BIMATOPROST
     Indication: Neovascular age-related macular degeneration
     Dosage: UNK
     Route: 061
  5. PREDNISOLONE ACETATE [Concomitant]
     Active Substance: PREDNISOLONE ACETATE
     Indication: Neovascular age-related macular degeneration
     Dosage: UNK
     Route: 065
  6. MOXIFLOXACIN [Concomitant]
     Active Substance: MOXIFLOXACIN
     Indication: Neovascular age-related macular degeneration
     Dosage: UNK
     Route: 065

REACTIONS (8)
  - Medication error [Unknown]
  - Blindness transient [Recovered/Resolved]
  - Intraocular pressure increased [Recovered/Resolved]
  - Incorrect route of product administration [Recovered/Resolved]
  - Accidental exposure to product [Recovered/Resolved]
  - Product preparation error [Recovered/Resolved]
  - Accidental exposure to product [Recovered/Resolved]
  - Visual acuity reduced [Recovered/Resolved]
